FAERS Safety Report 8666510 (Version 3)
Quarter: 2012Q4

REPORT INFORMATION
  Report Type: Spontaneous
  Country: DK (occurrence: None)
  Receive Date: 20120629
  Receipt Date: 20121011
  Transmission Date: 20130627
  Serious: Yes (Hospitalization, Other)
  Sender: FDA-Public Use
  Company Number: AUR-APL-2012-02747

PATIENT
  Age: 61 Year
  Sex: Female

DRUGS (2)
  1. METFORMIN HYDROCHLORIDE [Suspect]
     Indication: PRODUCT USED FOR UNKNOWN INDICATION
  2. INSULIN NOS [Suspect]
     Indication: DRUG USE FOR UNKNOWN INDICATION

REACTIONS (11)
  - Abdominal discomfort [None]
  - Confusional state [None]
  - Tachypnoea [None]
  - Bradycardia [None]
  - Hypotension [None]
  - Anuria [None]
  - Lactic acidosis [None]
  - Metabolic acidosis [None]
  - Septic shock [None]
  - Hyperkalaemia [None]
  - Continuous haemodiafiltration [None]
